FAERS Safety Report 5556670-8 (Version None)
Quarter: 2007Q4

REPORT INFORMATION
  Report Type: 
  Country: None (occurrence: None)
  Receive Date: 20071205
  Receipt Date: 20071128
  Transmission Date: 20080405
  Serious: Yes (Other)
  Sender: FDA-Public Use
  Company Number: 2007332829

PATIENT
  Age: 45 Year
  Sex: Female
  Weight: 27.2 kg

DRUGS (1)
  1. NICOTINE [Suspect]
     Indication: SMOKING CESSATION THERAPY
     Dosage: 16.6 MG DAILY (16.6 MG), TRANSDERMAL
     Route: 062
     Dates: start: 20071004, end: 20071006

REACTIONS (4)
  - APPLICATION SITE IRRITATION [None]
  - BLISTER [None]
  - PHARMACEUTICAL PRODUCT COMPLAINT [None]
  - PRURITUS [None]
